FAERS Safety Report 6337517-9 (Version None)
Quarter: 2009Q3

REPORT INFORMATION
  Report Type: 
  Country: None (occurrence: None)
  Receive Date: 20090902
  Receipt Date: 20090824
  Transmission Date: 20100115
  Serious: Yes (Hospitalization, Other)
  Sender: FDA-Public Use
  Company Number: PHHY2009GB16432

PATIENT
  Sex: Female

DRUGS (27)
  1. CLOZARIL [Suspect]
     Indication: SCHIZOPHRENIA
     Dosage: 150 MG, UNK
     Route: 048
     Dates: start: 20080627
  2. CLOZARIL [Suspect]
     Indication: PERSONALITY DISORDER
     Dosage: 75 MG, BID
  3. VENLAFAXINE HYDROCHLORIDE [Concomitant]
     Indication: DEPRESSED MOOD
     Dosage: 75 MG, TID
     Route: 048
     Dates: start: 20080501
  4. VALPROATE SODIUM [Concomitant]
     Indication: AFFECTIVE DISORDER
     Dosage: 750 MG, TID
     Route: 048
     Dates: start: 20080501
  5. HALOPERIDOL [Concomitant]
     Indication: AGGRESSION
     Dosage: 5 MG, BID, PRN
     Route: 048
  6. HALOPERIDOL [Concomitant]
     Dosage: 5 MG, BID, PRN
     Route: 030
  7. QUETIAPINE [Concomitant]
     Dosage: 200 MG, TID
     Dates: start: 20080501, end: 20080701
  8. DIAZEPAM [Concomitant]
     Dosage: 10 MG, TID
     Dates: start: 20080501, end: 20080701
  9. DIAZEPAM [Concomitant]
     Dosage: 5 MG, QD, MAX 20 MG IN 24 HOURS PRN
  10. TEMAZEPAM [Concomitant]
     Dosage: 20 MG, QHS
     Dates: start: 20080501, end: 20080701
  11. FUSIDATE SODIUM [Concomitant]
     Dosage: 500 MG, TID
     Dates: start: 20090701
  12. OMEPRAZOLE [Concomitant]
     Dosage: 20 MG, QD
     Dates: start: 20090701
  13. DOXYCYCLINE [Concomitant]
     Dosage: 100 MG, QD
     Dates: start: 20090701
  14. BUPRENORPHINE HCL [Concomitant]
     Dosage: 10 UG, QW
     Dates: start: 20090701
  15. HYOSCINE HBR HYT [Concomitant]
     Dosage: 300 UG, TID
  16. HYOSCINE HBR HYT [Concomitant]
     Dosage: MAX OF 900 MCG IN 24 HOURS PRN
  17. GAVISCON [Concomitant]
     Dosage: 10 ML, QD
  18. GAVISCON [Concomitant]
     Dosage: MAX OF 40 MLS IN 24 HOURS PRN
  19. METOCLOPRAMIDE [Concomitant]
     Dosage: 10 MG, TID
  20. METOCLOPRAMIDE [Concomitant]
     Dosage: MAX 30 MGS IN 24 HOURS PRN
  21. LACTULOSE [Concomitant]
  22. CODEINE PHOSPHATE [Concomitant]
     Dosage: 60 MG, TID
  23. CODEINE PHOSPHATE [Concomitant]
     Dosage: MAX 240 MGS IN 24 HOURS PRN
  24. DICLOFENAC [Concomitant]
     Dosage: 50 MG, TID
  25. DICLOFENAC [Concomitant]
     Dosage: MAX 150 MG IN 24 HOURS PRN
  26. PROMETHAZINE [Concomitant]
     Dosage: 20 MG, QHS
  27. PROMETHAZINE [Concomitant]
     Dosage: MAX 50 MGS IN 24 HOURS PRN

REACTIONS (24)
  - ACINETOBACTER INFECTION [None]
  - ANAEMIA OF CHRONIC DISEASE [None]
  - ARTHRALGIA [None]
  - ARTHRITIS BACTERIAL [None]
  - BLOOD ALKALINE PHOSPHATASE INCREASED [None]
  - BRONCHOSCOPY [None]
  - C-REACTIVE PROTEIN INCREASED [None]
  - CEREBRAL ATROPHY [None]
  - DYSPNOEA [None]
  - ELECTROCARDIOGRAM QT PROLONGED [None]
  - EMPYEMA [None]
  - JOINT EFFUSION [None]
  - JOINT SWELLING [None]
  - LARYNGEAL STENOSIS [None]
  - MOVEMENT DISORDER [None]
  - OSTEOMYELITIS [None]
  - PLEURAL DECORTICATION [None]
  - PNEUMONIA BACTERIAL [None]
  - PSEUDOMONAS INFECTION [None]
  - STAPHYLOCOCCAL INFECTION [None]
  - STRIDOR [None]
  - TRACHEAL FISTULA [None]
  - TRACHEOSTOMY [None]
  - VASCULAR PSEUDOANEURYSM [None]
